FAERS Safety Report 7067362-0 (Version None)
Quarter: 2010Q4

REPORT INFORMATION
  Report Type: 
  Country: None (occurrence: None)
  Receive Date: 20101022
  Receipt Date: 20101022
  Transmission Date: 20110411
  Serious: Yes (Hospitalization)
  Sender: FDA-Public Use
  Company Number: None

PATIENT
  Sex: Female
  Weight: 70.46 kg

DRUGS (10)
  1. FLUOROURACIL [Suspect]
     Dosage: 680 MG
     Route: 042
     Dates: end: 20101013
  2. BEVACIZUMAB (RHUMAB VEGF) [Suspect]
     Dosage: 350 MG
     Dates: end: 20101013
  3. LEUCOVORIN CALCIUM [Suspect]
     Dosage: 680 MG
     Dates: end: 20101013
  4. ELOXATIN [Suspect]
     Dosage: 145 MG
     Dates: end: 20101013
  5. ALOXI [Concomitant]
  6. OXYCODONE HCL AND ACETAMINOPHEN [Suspect]
  7. NEXIUM [Concomitant]
  8. SENNA-S [Concomitant]
  9. TYLENOL EXTRA STRENGTH [Concomitant]
  10. DEXAMETHASONE [Concomitant]

REACTIONS (9)
  - BODY TEMPERATURE INCREASED [None]
  - COLONIC STENOSIS [None]
  - CYST [None]
  - DIARRHOEA [None]
  - HIATUS HERNIA [None]
  - LEUKOCYTOSIS [None]
  - LYMPHADENOPATHY [None]
  - METASTASES TO LIVER [None]
  - OBSTRUCTION GASTRIC [None]
